FAERS Safety Report 15492573 (Version 1)
Quarter: 2018Q4

REPORT INFORMATION
  Report Type: Spontaneous
  Country: US (occurrence: US)
  Receive Date: 20181012
  Receipt Date: 20181012
  Transmission Date: 20190205
  Serious: Yes (Hospitalization, Disabling)
  Sender: FDA-Public Use
  Company Number: US-JNJFOC-20181013803

PATIENT
  Age: 69 Year
  Sex: Male

DRUGS (1)
  1. INVOKANA [Suspect]
     Active Substance: CANAGLIFLOZIN
     Indication: PRODUCT USED FOR UNKNOWN INDICATION
     Route: 048
     Dates: start: 20150122

REACTIONS (4)
  - Impaired healing [Unknown]
  - Ulcer [Unknown]
  - Gangrene [Unknown]
  - Limb amputation [Unknown]

NARRATIVE: CASE EVENT DATE: 201708
